FAERS Safety Report 6101717-3 (Version None)
Quarter: 2009Q1

REPORT INFORMATION
  Report Type: 
  Country: None (occurrence: None)
  Receive Date: 20090304
  Receipt Date: 20090225
  Transmission Date: 20090719
  Serious: Yes (Other)
  Sender: FDA-Public Use
  Company Number: A0770203A

PATIENT
  Sex: Male

DRUGS (3)
  1. LOVAZA [Suspect]
     Indication: DRUG USE FOR UNKNOWN INDICATION
     Dosage: 2CAP SINGLE DOSE
     Route: 048
     Dates: start: 20090218
  2. THYROID MEDICATION [Concomitant]
  3. OTHER MEDICATIONS [Concomitant]

REACTIONS (4)
  - ABDOMINAL PAIN [None]
  - BACK PAIN [None]
  - INFLUENZA LIKE ILLNESS [None]
  - PANCREATITIS [None]
